FAERS Safety Report 15248890 (Version 1)
Quarter: 2018Q3

REPORT INFORMATION
  Report Type: Report from Study
  Country: US (occurrence: US)
  Receive Date: 20180807
  Receipt Date: 20180807
  Transmission Date: 20181010
  Serious: Yes (Death, Hospitalization, Other)
  Sender: FDA-Public Use
  Company Number: US-BAYER-2018-128880

PATIENT
  Age: 78 Year
  Sex: Male

DRUGS (1)
  1. ADEMPAS [Suspect]
     Active Substance: RIOCIGUAT
     Dosage: 2.5 MG, TID
     Route: 048
     Dates: start: 20170928

REACTIONS (4)
  - Death [Fatal]
  - Pneumonia [None]
  - PCO2 increased [None]
  - Asthenia [None]

NARRATIVE: CASE EVENT DATE: 20180627
